FAERS Safety Report 8545560-4 (Version None)
Quarter: 2012Q3

REPORT INFORMATION
  Report Type: 
  Country: None (occurrence: None)
  Receive Date: 20120727
  Receipt Date: 20111026
  Transmission Date: 20120928
  Serious: No
  Sender: FDA-Public Use
  Company Number: US-ASTRAZENECA-2011SE64927

PATIENT
  Age: 49 Year
  Sex: Female
  Weight: 54.4 kg

DRUGS (10)
  1. SEROQUEL XR [Suspect]
     Indication: DEPRESSION
     Route: 048
  2. SEROQUEL XR [Suspect]
     Indication: BIPOLAR DISORDER
     Route: 048
  3. DULOXETIME HYDROCHLORIDE [Concomitant]
     Indication: DEPRESSION
  4. ALPREZLAN [Concomitant]
     Indication: ANXIETY
  5. TOMASAPINE [Concomitant]
  6. FISH OIL [Concomitant]
  7. SEROQUEL XR [Suspect]
     Indication: SLEEP DISORDER
     Route: 048
  8. DULOXETIME HYDROCHLORIDE [Concomitant]
     Indication: PAIN
  9. TRASEDONE [Concomitant]
     Indication: SLEEP DISORDER
  10. CALCIUM CALTRATE PLUS [Concomitant]

REACTIONS (4)
  - OFF LABEL USE [None]
  - CONSTIPATION [None]
  - BODY HEIGHT DECREASED [None]
  - BLOOD CHOLESTEROL ABNORMAL [None]
